FAERS Safety Report 7407255-X (Version None)
Quarter: 2011Q2

REPORT INFORMATION
  Report Type: 
  Country: None (occurrence: None)
  Receive Date: 20110411
  Receipt Date: 20110329
  Transmission Date: 20111010
  Serious: Yes (Other)
  Sender: FDA-Public Use
  Company Number: PHHY2011US19270

PATIENT
  Sex: Female

DRUGS (34)
  1. PROMETHAZINE [Concomitant]
     Dosage: 25 MG, PRN
  2. FLUCONAZOLE [Concomitant]
     Dosage: 150 MG, EVERY TWO MONTH
  3. TEHOENEDINE [Concomitant]
     Dosage: 2 DF, QID
  4. FUROSEMIDE [Concomitant]
     Dosage: 40 MG, QD (AS NEEDED)
     Route: 048
  5. OXYTROL [Concomitant]
     Dosage: 3.9 MG, UNK
  6. HYDROCODONE BITARTRATE [Concomitant]
     Dosage: 10/500, THREE DAY PRN (50000 U EVERY MONTH)
  7. MULTI-VITAMIN [Concomitant]
     Dosage: UNK, DAILY
  8. NAPROXEN [Concomitant]
     Dosage: 500 MG, TID
  9. GABAPENTIN [Concomitant]
     Dosage: 300 MG, SIX TIMES DAILY
  10. EPINEPHRINE [Concomitant]
     Dosage: UNK
  11. CALTRATE 600 + VITAMIN D [Concomitant]
     Dosage: 1 DF, DAILY
  12. BETAMETHASONE [Concomitant]
     Dosage: UNK, DAILY
  13. PRILOCAINE HYDROCHLORIDE [Concomitant]
     Dosage: UNK
  14. CLONAZEPAM [Concomitant]
     Dosage: 1 MG, QHS
  15. DETROL [Concomitant]
     Dosage: 4 MG, QD
  16. ALBUTEROL [Concomitant]
     Dosage: 2.5 MG, UNK
  17. GILENYA [Suspect]
     Indication: MULTIPLE SCLEROSIS
     Dosage: 0.5 MG, QD
     Route: 048
     Dates: start: 20110211
  18. SOLU-MEDROL [Suspect]
     Dosage: 1 G, UNK
  19. HYDROXYZINE [Concomitant]
     Dosage: 25 MG, TID
  20. VENTOLIN [Concomitant]
     Dosage: UNK
  21. VITAMIN D [Concomitant]
     Dosage: UNK
  22. VITAMIN B-12 [Concomitant]
     Dosage: UNK, MONTHLY
  23. TIZANIDINE [Concomitant]
     Dosage: 4 MG, UNK (240 MONTHLY)
  24. BUTORPHANOL [Concomitant]
     Dosage: 10 ML, TWO TIME A MONTH
  25. LIDOCAINE [Concomitant]
     Dosage: UNK
  26. PROTONIX [Concomitant]
     Dosage: 40 MG, QD
  27. CYMBALTA [Concomitant]
     Dosage: 60 MG, QD
  28. ACUVIL [Concomitant]
     Dosage: 1 DRP, UNK
  29. TRIAMCINOLONE ACETONIDE W/NYSTATIN [Concomitant]
     Dosage: UNK, DAILY
  30. LAMISIL [Concomitant]
     Dosage: 250 MG, QD
  31. XIBROM [Concomitant]
     Dosage: 2 DRP, IN EACH EYES
  32. ARTICVAL TEARS [Concomitant]
     Dosage: 2-3 DROP EACH EYE DAILY
  33. TOTAL B WITH C [Concomitant]
     Dosage: UNK
  34. LOVAZA [Concomitant]
     Dosage: 1000 MG, TID

REACTIONS (24)
  - PHOTOSENSITIVITY REACTION [None]
  - ANGIOEDEMA [None]
  - DYSPNOEA [None]
  - OEDEMA PERIPHERAL [None]
  - EPISTAXIS [None]
  - POLYURIA [None]
  - PERIORBITAL OEDEMA [None]
  - SWELLING [None]
  - NECK PAIN [None]
  - ODYNOPHAGIA [None]
  - CYANOSIS [None]
  - PYREXIA [None]
  - NAUSEA [None]
  - OEDEMA GENITAL [None]
  - PAIN [None]
  - DYSPHAGIA [None]
  - EYELID PTOSIS [None]
  - MIGRAINE [None]
  - HEART RATE DECREASED [None]
  - DYSARTHRIA [None]
  - LIP OEDEMA [None]
  - SINUSITIS [None]
  - HYPERTENSION [None]
  - GAIT DISTURBANCE [None]
